FAERS Safety Report 7956374-8 (Version None)
Quarter: 2011Q4

REPORT INFORMATION
  Report Type: 
  Country: None (occurrence: None)
  Receive Date: 20111205
  Receipt Date: 20111129
  Transmission Date: 20120403
  Serious: Yes (Other)
  Sender: FDA-Public Use
  Company Number: CA-PFIZER INC-2011254857

PATIENT
  Age: 48 Year
  Sex: Female
  Weight: 70.295 kg

DRUGS (4)
  1. VARENICLINE TARTRATE [Suspect]
     Indication: SMOKING CESSATION THERAPY
     Dosage: 0.5 MG, 1X/DAY
     Route: 048
     Dates: start: 20111001, end: 20111019
  2. TYLENOL W/ CODEINE NO. 3 [Concomitant]
     Indication: BACK PAIN
     Dosage: TWO, EVERY 4 HOURS AS NEEDED
     Dates: start: 20080101
  3. NAPROXEN [Concomitant]
     Indication: BACK PAIN
     Dosage: ONE AS NEEDED
     Dates: start: 20110617
  4. CANNABIS [Concomitant]
     Dosage: DAILY
     Dates: start: 19690101

REACTIONS (10)
  - HOMICIDAL IDEATION [None]
  - FEELING ABNORMAL [None]
  - DECREASED INTEREST [None]
  - CRYING [None]
  - DEPRESSED MOOD [None]
  - AMNESIA [None]
  - EYE OEDEMA [None]
  - TOBACCO USER [None]
  - MOOD SWINGS [None]
  - INDIFFERENCE [None]
